FAERS Safety Report 21586931 (Version 1)
Quarter: 2022Q4

REPORT INFORMATION
  Report Type: Spontaneous
  Country: US (occurrence: None)
  Receive Date: 20221110
  Receipt Date: 20221110
  Transmission Date: 20230112
  Serious: No
  Sender: FDA-Public Use
  Company Number: None

PATIENT
  Age: 78 Year
  Sex: Male

DRUGS (22)
  1. PIRFENIDONE [Suspect]
     Active Substance: PIRFENIDONE
     Indication: Idiopathic pulmonary fibrosis
     Dosage: FREQUENCY : 3 TIMES A DAY;?
     Route: 048
     Dates: start: 20220712
  2. ASPIRIN [Concomitant]
     Active Substance: ASPIRIN
  3. CALCIUM\CHOLECALCIFEROL [Concomitant]
     Active Substance: CALCIUM\CHOLECALCIFEROL
  4. DORZOLAMIDE [Concomitant]
     Active Substance: DORZOLAMIDE
  5. ESBRIET [Concomitant]
     Active Substance: PIRFENIDONE
  6. FISH OIL [Concomitant]
     Active Substance: FISH OIL
  7. FLONASE [Concomitant]
     Active Substance: FLUTICASONE PROPIONATE
  8. FUROSEMIDE TAB [Concomitant]
  9. GABAPENTIN TAB [Concomitant]
  10. GLIPIZIDE TAB [Concomitant]
  11. GLUCOSAMINE CAP [Concomitant]
  12. JARDIANCE TAB [Concomitant]
  13. LATANOPROST SOL [Concomitant]
  14. LOSARTAN POT TAB [Concomitant]
  15. METFORMIN TAB [Concomitant]
  16. OFLOXACIN TAB [Concomitant]
  17. PREDNISONE [Concomitant]
     Active Substance: PREDNISONE
  18. RANITIDINE TAB [Concomitant]
  19. ROSUVASTATIN [Concomitant]
     Active Substance: ROSUVASTATIN
  20. STOOL SOFTNR CAP [Concomitant]
  21. VITAMIN D3 TAB [Concomitant]
  22. ZYRTEC ALLGY TAB [Concomitant]

REACTIONS (2)
  - Pneumonia [None]
  - Product dose omission issue [None]

NARRATIVE: CASE EVENT DATE: 20221105
